FAERS Safety Report 6059541-6 (Version None)
Quarter: 2009Q1

REPORT INFORMATION
  Report Type: 
  Country: None (occurrence: None)
  Receive Date: 20090121
  Receipt Date: 20090114
  Transmission Date: 20090719
  Serious: Yes (Other)
  Sender: FDA-Public Use
  Company Number: 200814455

PATIENT
  Age: 31 Year
  Sex: Female
  Weight: 136.0791 kg

DRUGS (2)
  1. VIVAGLOBIN [Suspect]
     Indication: IMMUNODEFICIENCY COMMON VARIABLE
     Dosage: 43 ML Q1W SC; 43 ML Q1W SC
     Route: 058
     Dates: start: 20081211
  2. VIVAGLOBIN [Suspect]
     Indication: IMMUNODEFICIENCY COMMON VARIABLE
     Dosage: 43 ML Q1W SC; 43 ML Q1W SC
     Route: 058
     Dates: start: 20081219

REACTIONS (2)
  - MENINGITIS ASEPTIC [None]
  - TREATMENT NONCOMPLIANCE [None]
